FAERS Safety Report 5669985-X (Version None)
Quarter: 2008Q1

REPORT INFORMATION
  Report Type: 
  Country: None (occurrence: None)
  Receive Date: 20080312
  Receipt Date: 20080304
  Transmission Date: 20080703
  Serious: Yes (Death, Hospitalization)
  Sender: FDA-Public Use
  Company Number: 2008SP002166

PATIENT
  Age: 75 Year
  Sex: Female
  Weight: 71 kg

DRUGS (11)
  1. TEMOZOLOMIDE [Suspect]
     Indication: GLIOBLASTOMA
     Dosage: 130 MG; QD; PO
     Route: 048
     Dates: start: 20071204, end: 20071211
  2. TEMOZOLOMIDE [Suspect]
  3. TEMOZOLOMIDE [Suspect]
  4. DEXAMETHASONE TAB [Suspect]
     Indication: GLIOBLASTOMA MULTIFORME
     Dosage: 4 MG; TID; PO
     Route: 048
     Dates: start: 20080102
  5. CONTRIM FORTE [Concomitant]
  6. L THYROXIN 50 [Concomitant]
  7. REMERGIL 30 [Concomitant]
  8. TAVOR [Concomitant]
  9. RISPERDAL [Concomitant]
  10. EUNERPAN [Concomitant]
  11. PANTOZOL [Concomitant]

REACTIONS (8)
  - APATHY [None]
  - BRAIN OEDEMA [None]
  - CONFUSIONAL STATE [None]
  - DISEASE PROGRESSION [None]
  - NEUTROPENIA [None]
  - PNEUMONIA [None]
  - PYREXIA [None]
  - THROMBOCYTOPENIA [None]
